FAERS Safety Report 5979437-5 (Version None)
Quarter: 2008Q4

REPORT INFORMATION
  Report Type: 
  Country: None (occurrence: None)
  Receive Date: 20081126
  Receipt Date: 20081114
  Transmission Date: 20090506
  Serious: Yes (Death)
  Sender: FDA-Public Use
  Company Number: 2008002988

PATIENT
  Age: 67 Year
  Sex: Male

DRUGS (8)
  1. ERLOTINIB (ERLOTINIB) (TABLET) (ERLOTINIB) [Suspect]
     Indication: NON-SMALL CELL LUNG CANCER
     Dosage: 150 MG, QD, ORAL
     Route: 048
     Dates: start: 20080819
  2. HYDROCORTISONE [Concomitant]
  3. TRANEXAMIC ACID (TRANEXAMIC ACID) [Concomitant]
  4. CIPROFLOXACIN [Concomitant]
  5. BROMHEXINE (BROMHEXINE) [Concomitant]
  6. MEGESTROL ACETATE (MEGESTEROL ACETATE) [Concomitant]
  7. OXYCODONE HCL [Concomitant]
  8. SUNITINIB/PLACEBO [Suspect]
     Dosage: 37.5 MG,QD ORAL
     Route: 048
     Dates: start: 20080819

REACTIONS (1)
  - SUDDEN DEATH [None]
